FAERS Safety Report 7226948-0 (Version None)
Quarter: 2011Q1

REPORT INFORMATION
  Report Type: 
  Country: None (occurrence: None)
  Receive Date: 20110111
  Receipt Date: 20110111
  Transmission Date: 20110831
  Serious: Yes (Other)
  Sender: FDA-Public Use
  Company Number: None

PATIENT
  Sex: Female
  Weight: 68.0396 kg

DRUGS (1)
  1. PRAVASTATIN [Suspect]
     Indication: BLOOD CHOLESTEROL ABNORMAL
     Dosage: 40 MG 1 DAILY
     Dates: start: 20100401, end: 20101212

REACTIONS (9)
  - HAEMORRHAGE [None]
  - LIP SWELLING [None]
  - CHEST DISCOMFORT [None]
  - TENDERNESS [None]
  - HEADACHE [None]
  - MYALGIA [None]
  - DIZZINESS [None]
  - ANGINA PECTORIS [None]
  - PAIN IN EXTREMITY [None]
